FAERS Safety Report 17683230 (Version 3)
Quarter: 2020Q2

REPORT INFORMATION
  Report Type: Spontaneous
  Country: US (occurrence: US)
  Receive Date: 20200420
  Receipt Date: 20200603
  Transmission Date: 20200714
  Serious: No
  Sender: FDA-Public Use
  Company Number: US-ASTRAZENECA-2020SE50444

PATIENT
  Age: 17676 Day
  Sex: Female
  Weight: 113.4 kg

DRUGS (1)
  1. BYDUREON BCISE [Suspect]
     Active Substance: EXENATIDE
     Indication: DIABETES MELLITUS
     Route: 058
     Dates: start: 20200309

REACTIONS (8)
  - Product closure removal difficult [Unknown]
  - Wrong technique in product usage process [Unknown]
  - Device leakage [Unknown]
  - Erythema [Unknown]
  - Starvation [Unknown]
  - Headache [Unknown]
  - Blood glucose fluctuation [Unknown]
  - Feeling of body temperature change [Unknown]

NARRATIVE: CASE EVENT DATE: 20200317
